FAERS Safety Report 9440963 (Version 2)
Quarter: 2013Q3

REPORT INFORMATION
  Report Type: Spontaneous
  Country: ES (occurrence: ES)
  Receive Date: 20130805
  Receipt Date: 20130921
  Transmission Date: 20140515
  Serious: Yes (Hospitalization)
  Sender: FDA-Public Use
  Company Number: ES-ROCHE-1254886

PATIENT
  Age: 44 Year
  Sex: Female
  Weight: 120 kg

DRUGS (5)
  1. PEGASYS [Suspect]
     Indication: HEPATITIS C
     Route: 065
     Dates: start: 20130510, end: 20130710
  2. COPEGUS [Suspect]
     Indication: HEPATITIS C
     Dosage: EVERY 12 HRS
     Route: 065
     Dates: start: 20130510, end: 20130710
  3. VICTRELIS [Suspect]
     Indication: HEPATITIS C
     Dosage: 4 TABLETS PER 8 HOURS
     Route: 048
     Dates: start: 20130510, end: 20130616
  4. VICTRELIS [Suspect]
     Dosage: 4 TABLETS PER 8 HOURS
     Route: 048
     Dates: start: 20130608, end: 20130616
  5. CIPROFLOXACIN [Concomitant]

REACTIONS (4)
  - Cardiac failure congestive [Recovered/Resolved]
  - Pyrexia [Recovered/Resolved]
  - Urinary tract infection [Recovered/Resolved]
  - Abdominal pain upper [Recovered/Resolved]
